FAERS Safety Report 17509562 (Version 2)
Quarter: 2020Q2

REPORT INFORMATION
  Report Type: Report from Study
  Country: FR (occurrence: FR)
  Receive Date: 20200306
  Receipt Date: 20200408
  Transmission Date: 20200713
  Serious: Yes (Hospitalization, Other)
  Sender: FDA-Public Use
  Company Number: FR-JAZZ-2020-FR-003003

PATIENT

DRUGS (6)
  1. ARACYTINE [Concomitant]
     Active Substance: CYTARABINE
     Indication: PRODUCT USED FOR UNKNOWN INDICATION
  2. FLUDARABINE [Concomitant]
     Active Substance: FLUDARABINE PHOSPHATE
     Indication: BONE MARROW CONDITIONING REGIMEN
     Dosage: 150 MG/M 2
  3. BUSULFAN. [Concomitant]
     Active Substance: BUSULFAN
     Indication: BONE MARROW CONDITIONING REGIMEN
     Dosage: 6.4 MG/KG
  4. URSODEOXYCHOLIC ACID [Concomitant]
     Active Substance: URSODIOL
     Indication: PRODUCT USED FOR UNKNOWN INDICATION
  5. XATRAL [ALFUZOSIN HYDROCHLORIDE] [Suspect]
     Active Substance: ALFUZOSIN
     Indication: HYPERTONIC BLADDER
     Dosage: 10 MILLIGRAM
     Route: 048
     Dates: start: 20200102, end: 20200108
  6. DEFITELIO [Suspect]
     Active Substance: DEFIBROTIDE SODIUM
     Indication: PROPHYLAXIS
     Dosage: 22 MILLIGRAM/KILOGRAM, QD
     Route: 042
     Dates: start: 20190528, end: 20190613

REACTIONS (4)
  - Graft versus host disease [Unknown]
  - Hypotension [Recovered/Resolved]
  - Off label use [Unknown]
  - Epididymitis [Recovered/Resolved]

NARRATIVE: CASE EVENT DATE: 20190528
